FAERS Safety Report 6346744-6 (Version None)
Quarter: 2009Q3

REPORT INFORMATION
  Report Type: 
  Country: None (occurrence: None)
  Receive Date: 20090904
  Receipt Date: 20090824
  Transmission Date: 20100115
  Serious: Yes (Hospitalization)
  Sender: FDA-Public Use
  Company Number: 1-19630361

PATIENT
  Age: 73 Year
  Sex: Female

DRUGS (4)
  1. PROPAFENONE HCL [Suspect]
     Indication: ARRHYTHMIA
     Dosage: 150 MG DAILY, ORAL
     Route: 048
     Dates: start: 20070301, end: 20070501
  2. WARFARIN SODIUM [Concomitant]
  3. LISINOPRIL [Concomitant]
  4. HYDROCHLOROTHIAZIDE [Concomitant]

REACTIONS (3)
  - ASTHENIA [None]
  - CUTANEOUS LUPUS ERYTHEMATOSUS [None]
  - NEUTROPENIA [None]
